FAERS Safety Report 18718285 (Version 2)
Quarter: 2022Q1

REPORT INFORMATION
  Report Type: Spontaneous
  Country: US (occurrence: US)
  Receive Date: 20210108
  Receipt Date: 20220106
  Transmission Date: 20220424
  Serious: No
  Sender: FDA-Public Use
  Company Number: US-AMNEAL PHARMACEUTICALS-2020-AMRX-03655

PATIENT
  Age: 31 Year
  Sex: Female
  Weight: 123 kg

DRUGS (12)
  1. ACTIVELLA [Suspect]
     Active Substance: ESTRADIOL\NORETHINDRONE ACETATE
     Indication: Uterine leiomyoma
     Dosage: 1 CAPSULES, 1 /DAY
     Route: 048
     Dates: start: 20200713
  2. ELAGOLIX [Suspect]
     Active Substance: ELAGOLIX
     Indication: Uterine leiomyoma
     Dosage: 300 MILLIGRAM, 1 /DAY
     Route: 048
     Dates: start: 20200713
  3. ERGOCALCIFEROL [Concomitant]
     Active Substance: ERGOCALCIFEROL
     Indication: Vitamin D deficiency
     Dosage: 4000 MILLIGRAM, 1 /DAY
     Route: 048
     Dates: start: 20190916
  4. ACETAMINOPHEN [Concomitant]
     Active Substance: ACETAMINOPHEN
     Indication: Back pain
     Dosage: 2 TABLETS,AS NEEDED
     Route: 048
     Dates: start: 20191225
  5. FOLIC ACID [Concomitant]
     Active Substance: FOLIC ACID
     Indication: Haemoglobin decreased
     Dosage: 800 MICROGRAM, 1 /DAY
     Route: 048
     Dates: start: 20200902
  6. PHENTERMINE [Concomitant]
     Active Substance: PHENTERMINE
     Indication: Weight decreased
     Dosage: 37.5 MILLIGRAM, 1 /DAY, IN THE MORNING
     Route: 048
     Dates: start: 20200902
  7. PHENTERMINE [Concomitant]
     Active Substance: PHENTERMINE
     Indication: Increased appetite
  8. ASCORBIC ACID [Concomitant]
     Active Substance: ASCORBIC ACID
     Indication: Haemoglobin decreased
     Dosage: 1000 MILLIGRAM, 1 /DAY
     Route: 048
     Dates: start: 20200902
  9. IRON [Concomitant]
     Active Substance: IRON
     Indication: Haemoglobin decreased
     Dosage: 65 MILLIGRAM, 1 /DAY
     Route: 048
     Dates: start: 20200902
  10. FERROUS GLUCONATE [Concomitant]
     Active Substance: FERROUS GLUCONATE
     Indication: Haemoglobin decreased
     Dosage: 10 MILLIGRAM, 2 /DAY, 2 TABLESPOONS
     Route: 048
     Dates: start: 20200910
  11. HYDROCHLOROTHIAZIDE [Concomitant]
     Active Substance: HYDROCHLOROTHIAZIDE
     Indication: Hypertension
     Dosage: 25 MILLIGRAM, 1/DAY
     Route: 048
     Dates: start: 20190623
  12. LOSARTAN POTASSIUM [Concomitant]
     Active Substance: LOSARTAN POTASSIUM
     Indication: Hypertension
     Dosage: 25 MILLIGRAM, 1 /DAY
     Route: 048
     Dates: start: 20190817

REACTIONS (2)
  - Alanine aminotransferase increased [Recovered/Resolved]
  - Aspartate aminotransferase increased [Recovered/Resolved]

NARRATIVE: CASE EVENT DATE: 20201002
